FAERS Safety Report 15475547 (Version 1)
Quarter: 2018Q4

REPORT INFORMATION
  Report Type: Spontaneous
  Country: CH (occurrence: CH)
  Receive Date: 20181008
  Receipt Date: 20181008
  Transmission Date: 20190205
  Serious: Yes (Other)
  Sender: FDA-Public Use
  Company Number: CH-DSJP-DSE-2018-142797

PATIENT

DRUGS (1)
  1. LIXIANA [Suspect]
     Active Substance: EDOXABAN TOSYLATE
     Indication: ATRIAL FLUTTER
     Dosage: 60 MG, UNK
     Route: 048

REACTIONS (2)
  - Off label use [Unknown]
  - Amaurosis fugax [Unknown]
